FAERS Safety Report 14078416 (Version 1)
Quarter: 2017Q4

REPORT INFORMATION
  Report Type: Spontaneous
  Country: US (occurrence: None)
  Receive Date: 20171012
  Receipt Date: 20171012
  Transmission Date: 20180321
  Serious: No
  Sender: FDA-Public Use
  Company Number: None

PATIENT

DRUGS (2)
  1. RISPERDAL [Suspect]
     Active Substance: RISPERIDONE
  2. ROPINIROLE HCL [Suspect]
     Active Substance: ROPINIROLE HYDROCHLORIDE
     Route: 048

REACTIONS (2)
  - Wrong technique in product usage process [None]
  - Drug dispensing error [None]
